FAERS Safety Report 6284766-4 (Version None)
Quarter: 2009Q3

REPORT INFORMATION
  Report Type: 
  Country: None (occurrence: None)
  Receive Date: 20090727
  Receipt Date: 20090723
  Transmission Date: 20100115
  Serious: Yes (Death)
  Sender: FDA-Public Use
  Company Number: PHHY2009BR30692

PATIENT
  Sex: Female

DRUGS (3)
  1. DIOVAN [Suspect]
     Indication: BLOOD PRESSURE
     Dosage: 1 DF (320 MG) PER DAY
     Route: 048
     Dates: start: 20090401
  2. VASOGARD [Concomitant]
     Indication: VARICOSE VEIN
     Dosage: 1 DF (100 MG) PER DAY
     Route: 048
  3. ASPIRIN [Concomitant]
     Dosage: 1 TABLET PER DAY
     Route: 048
     Dates: start: 20090501

REACTIONS (3)
  - CEREBROVASCULAR ACCIDENT [None]
  - RENAL FAILURE [None]
  - RESPIRATORY FAILURE [None]
